FAERS Safety Report 18718386 (Version 2)
Quarter: 2021Q1

REPORT INFORMATION
  Report Type: Report from Study
  Country: CN (occurrence: CN)
  Receive Date: 20210108
  Receipt Date: 20210324
  Transmission Date: 20210419
  Serious: Yes (Death, Life-Threatening, Other)
  Sender: FDA-Public Use
  Company Number: CN-009507513-2012CHN012010

PATIENT
  Age: 72 Year
  Sex: Male
  Weight: 65 kg

DRUGS (3)
  1. SUGAMMADEX SODIUM [Suspect]
     Active Substance: SUGAMMADEX SODIUM
     Indication: NEUROMUSCULAR BLOCKADE REVERSAL
     Dosage: 100 MG
     Route: 042
     Dates: start: 20201207, end: 20201207
  2. TIENAM [Suspect]
     Active Substance: CILASTATIN SODIUM\IMIPENEM
     Indication: INCISION SITE INFLAMMATION
     Dosage: 1 GRAM, Q8H
     Route: 041
     Dates: start: 20201212, end: 20201217
  3. TIENAM [Suspect]
     Active Substance: CILASTATIN SODIUM\IMIPENEM
     Indication: PNEUMONIA
     Dosage: 1 GRAM, Q8H
     Route: 041
     Dates: start: 20201208, end: 20201211

REACTIONS (20)
  - Pneumonia [Fatal]
  - Coma [Not Recovered/Not Resolved]
  - Implant site haemorrhage [Unknown]
  - Vomiting [Recovered/Resolved]
  - Palpitations [Not Recovered/Not Resolved]
  - Coagulopathy [Not Recovered/Not Resolved]
  - Nausea [Recovered/Resolved]
  - Abdominal pain [Recovered/Resolved]
  - Heart rate decreased [Unknown]
  - Hepatic function abnormal [Not Recovered/Not Resolved]
  - Respiratory rate decreased [Unknown]
  - Hypoxia [Not Recovered/Not Resolved]
  - Enterobacter test positive [Unknown]
  - Incision site pain [Recovered/Resolved]
  - Anaemia [Recovered/Resolved]
  - Blood pressure abnormal [Unknown]
  - Incision site inflammation [Recovered/Resolved]
  - Hypoproteinaemia [Not Recovered/Not Resolved]
  - Platelet count decreased [Not Recovered/Not Resolved]
  - Cardiac dysfunction [Not Recovered/Not Resolved]

NARRATIVE: CASE EVENT DATE: 202012
